FAERS Safety Report 9840045 (Version 1)
Quarter: 2013Q4

REPORT INFORMATION
  Report Type: Spontaneous
  Country: US (occurrence: None)
  Receive Date: 20131211
  Receipt Date: 20131211
  Transmission Date: 20140711
  Serious: No
  Sender: FDA-Public Use
  Company Number: ALL1-2012-02022

PATIENT
  Age: 34 Year
  Sex: Female

DRUGS (1)
  1. FIRAZYR (ICATIBANT) SOLUTION FOR INJECTION IN PRE-FILLED SYRINGE [Suspect]
     Indication: HEREDITARY ANGIOEDEMA
     Dosage: 30 MG, AS REQ^D(MAX OF #3-30 MG DOSES IN ONE DAY), SUBCUTANEOUS
     Route: 058
     Dates: start: 20111122

REACTIONS (2)
  - Infusion site urticaria [None]
  - Infusion site erythema [None]
